FAERS Safety Report 16890984 (Version 1)
Quarter: 2019Q4

REPORT INFORMATION
  Report Type: Report from Study
  Country: US (occurrence: US)
  Receive Date: 20191007
  Receipt Date: 20191007
  Transmission Date: 20200122
  Serious: No
  Sender: FDA-Public Use
  Company Number: US-EMD SERONO-9107599

PATIENT
  Age: 29 Year
  Sex: Male

DRUGS (1)
  1. MAVENCLAD [Suspect]
     Active Substance: CLADRIBINE
     Indication: MULTIPLE SCLEROSIS
     Dosage: YEAR 1 MONTH 1 THERAPY: TWO TABLETS ONCE DAILY ON DAY 1 AND ONE TABLET ONCE DAILY ON DAYS 2 TO 5
     Route: 048
     Dates: start: 20190628

REACTIONS (3)
  - Fatigue [Unknown]
  - Sensory disturbance [Unknown]
  - Tremor [Unknown]

NARRATIVE: CASE EVENT DATE: 201907
